FAERS Safety Report 9117746 (Version 1)
Quarter: 2013Q1

REPORT INFORMATION
  Report Type: Spontaneous
  Country: US (occurrence: US)
  Receive Date: 20130128
  Receipt Date: 20130128
  Transmission Date: 20140127
  Serious: No
  Sender: FDA-Public Use
  Company Number: US-009507513-2012SP030292

PATIENT
  Age: 24 None
  Sex: Female
  Weight: 54.42 kg

DRUGS (1)
  1. IMPLANON [Suspect]
     Indication: CONTRACEPTION
     Dosage: LEFT ARM
     Route: 059
     Dates: start: 20110821

REACTIONS (4)
  - Metrorrhagia [Unknown]
  - Metrorrhagia [Not Recovered/Not Resolved]
  - Medical device complication [Unknown]
  - Medical device complication [Unknown]
